FAERS Safety Report 4472915-X (Version None)
Quarter: 2004Q4

REPORT INFORMATION
  Report Type: 
  Country: None (occurrence: None)
  Receive Date: 20041012
  Receipt Date: 20041012
  Transmission Date: 20050328
  Serious: Yes (Other)
  Sender: FDA-Public Use
  Company Number: None

PATIENT
  Age: 74 Year
  Sex: Male
  Weight: 82.6 kg

DRUGS (1)
  1. INDOMETHACIN [Suspect]
     Indication: PAIN
     Dosage: 75MG, 25MG TID, ORAL
     Route: 048
     Dates: start: 20040107, end: 20040902

REACTIONS (1)
  - GASTROINTESTINAL DISORDER [None]
